FAERS Safety Report 22242341 (Version 1)
Quarter: 2023Q2

REPORT INFORMATION
  Report Type: Spontaneous
  Country: US (occurrence: US)
  Receive Date: 20230422
  Receipt Date: 20230422
  Transmission Date: 20230722
  Serious: Yes (Death, Life-Threatening, Hospitalization, Other)
  Sender: FDA-Public Use
  Company Number: US-Accord-309134

PATIENT
  Age: 74 Year
  Sex: Male
  Weight: 120.00 kg

DRUGS (21)
  1. GEMCITABINE [Suspect]
     Active Substance: GEMCITABINE
     Indication: Pancreatic carcinoma metastatic
     Dosage: CYCLIC (ONE TIME PER WEEK FOR THREE WEEKS EVERY 21 DAY CYCLE)
     Route: 042
     Dates: start: 20200326, end: 20200331
  2. ABRAXANE [Suspect]
     Active Substance: PACLITAXEL
     Indication: Pancreatic carcinoma metastatic
     Dosage: CYCLIC (ONE TIME PER WEEK FOR THREE WEEKS EVERY 21 DAY CYCLE)
     Route: 042
     Dates: start: 20200326, end: 20200331
  3. VITAMIN B12 [Concomitant]
     Active Substance: CYANOCOBALAMIN
     Dosage: 250 MICROGRAM
     Dates: start: 20091204, end: 20200410
  4. PLAVIX [Concomitant]
     Active Substance: CLOPIDOGREL BISULFATE
     Dosage: 75 MG
     Dates: start: 20091204, end: 20200410
  5. LOVENOX [Concomitant]
     Active Substance: ENOXAPARIN SODIUM
     Dates: start: 20111207, end: 20200325
  6. KLONOPIN [Concomitant]
     Active Substance: CLONAZEPAM
     Dosage: 0.5 MG
     Dates: start: 20150506, end: 20200410
  7. POLYETHYLENE GLYCOL [Concomitant]
     Active Substance: POLYETHYLENE GLYCOL
     Dates: start: 20200214
  8. DIPHENHYDRAMINE [Concomitant]
     Active Substance: DIPHENHYDRAMINE
     Dates: start: 20200214, end: 20200410
  9. VITAMIN D3 [Concomitant]
     Active Substance: CHOLECALCIFEROL
     Dates: start: 20200214, end: 20200410
  10. FLUTICASONE PROPIONATE [Concomitant]
     Active Substance: FLUTICASONE PROPIONATE
     Dates: start: 20200214
  11. CANNABIDIOL [Concomitant]
     Active Substance: CANNABIDIOL
     Dosage: OIL
     Dates: start: 20200214, end: 20200410
  12. TOPROL XL [Concomitant]
     Active Substance: METOPROLOL SUCCINATE
     Dosage: TABLET, EXTENDED RELEASE, 25 MG
     Dates: start: 20200219
  13. ELIQUIS [Concomitant]
     Active Substance: APIXABAN
     Dosage: 5 MG
     Dates: start: 20200219, end: 20200410
  14. AMOXICILLIN [Concomitant]
     Active Substance: AMOXICILLIN
     Dosage: 500 MG
     Dates: start: 20200226, end: 20200404
  15. AZELASTINE [Concomitant]
     Active Substance: AZELASTINE
     Dates: start: 20200226, end: 20200404
  16. FOLIC ACID [Concomitant]
     Active Substance: FOLIC ACID
     Dosage: 2 MG
     Dates: start: 20200227, end: 20200410
  17. HEPARIN LOCK FLUSH [Concomitant]
     Active Substance: HEPARIN SODIUM
     Dates: start: 20200304, end: 20200331
  18. LORAZEPAM [Concomitant]
     Active Substance: LORAZEPAM
     Dates: start: 20200323, end: 20200410
  19. ONDANSETRON [Concomitant]
     Active Substance: ONDANSETRON
     Dates: start: 20200323
  20. APREPITANT [Concomitant]
     Active Substance: APREPITANT
     Dates: start: 20200325, end: 20200326
  21. TRAMADOL [Concomitant]
     Active Substance: TRAMADOL
     Dosage: 50 MG
     Dates: start: 20200325, end: 20200410

REACTIONS (16)
  - Malignant neoplasm progression [Fatal]
  - White blood cell count decreased [Not Recovered/Not Resolved]
  - Platelet count decreased [Not Recovered/Not Resolved]
  - Neutrophil count decreased [Not Recovered/Not Resolved]
  - Febrile neutropenia [Not Recovered/Not Resolved]
  - Encephalopathy [Not Recovered/Not Resolved]
  - Cerebrovascular accident [Not Recovered/Not Resolved]
  - Pulmonary embolism [Not Recovered/Not Resolved]
  - Thrombotic microangiopathy [Not Recovered/Not Resolved]
  - Atrial thrombosis [Not Recovered/Not Resolved]
  - Disseminated intravascular coagulation [Not Recovered/Not Resolved]
  - Lactic acidosis [Recovered/Resolved]
  - Hypotension [Unknown]
  - Decreased appetite [Unknown]
  - Cerebral infarction [Unknown]
  - Vena cava thrombosis [Unknown]

NARRATIVE: CASE EVENT DATE: 20200401
